FAERS Safety Report 6970889-0 (Version None)
Quarter: 2010Q3

REPORT INFORMATION
  Report Type: 
  Country: None (occurrence: None)
  Receive Date: 20100908
  Receipt Date: 20100830
  Transmission Date: 20110219
  Serious: Yes (Other)
  Sender: FDA-Public Use
  Company Number: US-ROCHE-724656

PATIENT
  Sex: Male

DRUGS (3)
  1. BEVACIZUMAB [Suspect]
     Indication: NEUROBLASTOMA
     Dosage: AS PER PROTOCOL:15 MGPER KG PER DOSE, DEFINED AS DAY 1.LAST PROTOCOL TREATMENT DATE: 27 AUGUST 2010.
     Route: 042
     Dates: start: 20100813
  2. IRINOTECAN HCL [Suspect]
     Indication: NEUROBLASTOMA
     Dosage: AS PER PROTOCOL: IRINOTECAN AT 50MG/M2/DAY X 5 DAYS.LAST PROTOCOL TREATMENT DATE: 27 AUGUST 2010.
     Route: 042
     Dates: start: 20100813
  3. TEMOZOLOMIDE [Suspect]
     Indication: NEUROBLASTOMA
     Dosage: AS PER PROTOCOL: TEMOZOLOMIDE AT 150MG/M2/DAY X 5 DAYS.LAST PROTOCOL TREATMENT DATE: 27 AUGUST 2010.
     Route: 048
     Dates: start: 20100813

REACTIONS (1)
  - ALANINE AMINOTRANSFERASE INCREASED [None]
